FAERS Safety Report 4294289-X (Version None)
Quarter: 2004Q1

REPORT INFORMATION
  Report Type: 
  Country: None (occurrence: None)
  Receive Date: 20040211
  Receipt Date: 20040204
  Transmission Date: 20041129
  Serious: No
  Sender: FDA-Public Use
  Company Number: 2003UW17208

PATIENT
  Age: 62 Year
  Sex: Female
  Weight: 86.1834 kg

DRUGS (6)
  1. IRESSA [Suspect]
     Indication: NON-SMALL CELL LUNG CANCER
     Dosage: 250 MG DAILY PO
     Route: 048
     Dates: start: 20031001
  2. DIAZEPAM [Concomitant]
  3. WARFARIN SODIUM [Concomitant]
  4. SYNTHROID [Concomitant]
  5. MOBIC [Concomitant]
  6. FUROSEMIDE [Concomitant]

REACTIONS (7)
  - ASTHENIA [None]
  - CHANGE OF BOWEL HABIT [None]
  - DECREASED APPETITE [None]
  - DIFFICULTY IN WALKING [None]
  - DYSURIA [None]
  - GASTROINTESTINAL MOTILITY DISORDER [None]
  - MOVEMENT DISORDER [None]
